FAERS Safety Report 6537913-0 (Version None)
Quarter: 2010Q1

REPORT INFORMATION
  Report Type: 
  Country: None (occurrence: None)
  Receive Date: 20100114
  Receipt Date: 20100111
  Transmission Date: 20100710
  Serious: Yes (Disabling)
  Sender: FDA-Public Use
  Company Number: MT-MERCK-1001USA00928

PATIENT
  Age: 50 Year
  Sex: Male
  Weight: 83 kg

DRUGS (4)
  1. ZOCOR [Suspect]
     Indication: HYPERLIPIDAEMIA
     Route: 048
     Dates: start: 20090601, end: 20091015
  2. NITROGLYCERIN [Concomitant]
     Indication: MYOCARDIAL ISCHAEMIA
     Dosage: DOSE 5
     Route: 065
     Dates: start: 20090601
  3. ASPIRIN [Concomitant]
     Indication: MYOCARDIAL ISCHAEMIA
     Dosage: DOSE 75
     Route: 065
     Dates: start: 20090601
  4. ISOSORBIDE DINITRATE [Concomitant]
     Indication: MYOCARDIAL ISCHAEMIA
     Dosage: DOSE 10
     Route: 065
     Dates: start: 20090601

REACTIONS (1)
  - ANDROGENETIC ALOPECIA [None]
